FAERS Safety Report 17143943 (Version 1)
Quarter: 2019Q4

REPORT INFORMATION
  Report Type: Report from Study
  Country: DE (occurrence: DE)
  Receive Date: 20191212
  Receipt Date: 20191212
  Transmission Date: 20200122
  Serious: Yes (Hospitalization)
  Sender: FDA-Public Use
  Company Number: PHHY2018DE072656

PATIENT
  Age: 42 Year
  Sex: Female
  Weight: 72 kg

DRUGS (15)
  1. MACROGOL [Concomitant]
     Active Substance: POLYETHYLENE GLYCOLS
     Indication: ENCOPRESIS
     Dosage: 2 DF, QD
     Route: 065
  2. NOVALGIN [Concomitant]
     Indication: PAIN
     Dosage: 20 GTT, TID
     Route: 065
     Dates: start: 20181207
  3. AMITRIPTYLINE [Concomitant]
     Active Substance: AMITRIPTYLINE
     Indication: SLEEP DISORDER
  4. VENLAFAXINE [Concomitant]
     Active Substance: VENLAFAXINE HYDROCHLORIDE
     Indication: DEPRESSION
     Dosage: 150 MG, UNK
     Route: 065
     Dates: start: 20170919
  5. DEKRISTOL [Concomitant]
     Active Substance: CHOLECALCIFEROL
     Indication: VITAMIN D DEFICIENCY
     Dosage: 20000 MG, QW
     Route: 065
  6. DULOXETINE. [Concomitant]
     Active Substance: DULOXETINE
     Indication: DEPRESSION
     Dosage: 60 OT, BID (1-1-0)
     Route: 065
     Dates: start: 20160408
  7. MINOCYCLINE [Concomitant]
     Active Substance: MINOCYCLINE HYDROCHLORIDE
     Indication: ACNE
     Dosage: 50 MG, UNK
     Route: 065
  8. BIFITERAL [Concomitant]
     Active Substance: LACTULOSE
     Indication: DEFAECATION DISORDER
     Dosage: 2 DF, QD
     Route: 065
  9. ZYPREXA [Concomitant]
     Active Substance: OLANZAPINE
     Indication: DEPRESSION
     Dosage: 2.5 MG, BID (0-0-1-1) (ONCE IN THE MORNING, ONCE AT NIGHT)
     Route: 065
     Dates: start: 20160508, end: 20170511
  10. AMITRIPTYLINE [Concomitant]
     Active Substance: AMITRIPTYLINE
     Indication: DEPRESSION
     Dosage: 10 MG, UNK
     Route: 065
     Dates: start: 20180320
  11. PREGABALIN. [Concomitant]
     Active Substance: PREGABALIN
     Indication: NEUROPATHY PERIPHERAL
     Dosage: 75 OT, QD (0-0-0-1)
     Route: 065
     Dates: start: 20160517
  12. MACROGOL [Concomitant]
     Active Substance: POLYETHYLENE GLYCOLS
     Indication: CONSTIPATION
  13. GILENYA [Suspect]
     Active Substance: FINGOLIMOD HYDROCHLORIDE
     Indication: MULTIPLE SCLEROSIS
     Dosage: 0.5 MG, QD
     Route: 048
     Dates: start: 20170216
  14. QUETIAPINE. [Concomitant]
     Active Substance: QUETIAPINE
     Indication: PERSISTENT DEPRESSIVE DISORDER
     Dosage: 25MG-100MG, QHS
     Route: 065
     Dates: start: 20170703
  15. ZYPREXA [Concomitant]
     Active Substance: OLANZAPINE
     Dosage: 5 MG, TID (1-1-1) (ONCE IN THE MORNING, ONCE AT NOON, ONCE AT NIGHT)
     Route: 065
     Dates: start: 20170511

REACTIONS (2)
  - Rheumatoid factor increased [Not Recovered/Not Resolved]
  - Muscle spasticity [Unknown]

NARRATIVE: CASE EVENT DATE: 20190702
